FAERS Safety Report 25313025 (Version 1)
Quarter: 2025Q2

REPORT INFORMATION
  Report Type: Spontaneous
  Country: US (occurrence: None)
  Receive Date: 20250513
  Receipt Date: 20250513
  Transmission Date: 20250717
  Serious: Yes (Disabling)
  Sender: FDA-CTU
  Company Number: None

PATIENT
  Age: 26 Year
  Sex: Female
  Weight: 85.5 kg

DRUGS (6)
  1. TOPIRAMATE [Suspect]
     Active Substance: TOPIRAMATE
     Indication: Migraine
  2. AMITRIPTYLINE [Concomitant]
     Active Substance: AMITRIPTYLINE
  3. birthcontrol [Concomitant]
  4. Metlatontin [Concomitant]
  5. VITAMINS [Concomitant]
     Active Substance: VITAMINS
  6. IBUPROFEN [Concomitant]
     Active Substance: IBUPROFEN

REACTIONS (7)
  - Brain fog [None]
  - Aphasia [None]
  - Disturbance in attention [None]
  - Disorganised speech [None]
  - Memory impairment [None]
  - Motor dysfunction [None]
  - Condition aggravated [None]
